FAERS Safety Report 7953603-1 (Version None)
Quarter: 2011Q4

REPORT INFORMATION
  Report Type: 
  Country: None (occurrence: None)
  Receive Date: 20111129
  Receipt Date: 20111118
  Transmission Date: 20120403
  Serious: Yes (Hospitalization)
  Sender: FDA-Public Use
  Company Number: 2011AT000451

PATIENT
  Age: 26 Year
  Sex: Male

DRUGS (5)
  1. ERYTHROPOIETIN (ERYTHROPOIETIN) [Suspect]
     Indication: PRODUCT USED FOR UNKNOWN INDICATION
  2. NANDROLONE DECANOATE [Suspect]
     Indication: PRODUCT USED FOR UNKNOWN INDICATION
  3. TESTOSTERONE [Suspect]
     Indication: PRODUCT USED FOR UNKNOWN INDICATION
  4. OXYMETAZOLINE HYDROCHLORIDE SOLUTION/DROPS [Suspect]
     Indication: PRODUCT USED FOR UNKNOWN INDICATION
  5. EPITESTOSTERONE (NO PREF. NAME) [Suspect]
     Indication: PRODUCT USED FOR UNKNOWN INDICATION

REACTIONS (16)
  - PLEURAL EFFUSION [None]
  - PNEUMONIA [None]
  - DRUG ABUSER [None]
  - HYPERCALCAEMIA [None]
  - NOCTURIA [None]
  - BLOOD PARATHYROID HORMONE DECREASED [None]
  - DILATATION VENTRICULAR [None]
  - PANCREATITIS [None]
  - GASTRITIS HAEMORRHAGIC [None]
  - HYPERTENSIVE CRISIS [None]
  - METABOLIC ACIDOSIS [None]
  - ATRIAL HYPERTROPHY [None]
  - MULTI-ORGAN DISORDER [None]
  - POLYURIA [None]
  - RENAL FAILURE [None]
  - DILATATION ATRIAL [None]
